FAERS Safety Report 8715857 (Version 2)
Quarter: 2012Q4

REPORT INFORMATION
  Report Type: Report from Study
  Country: US (occurrence: US)
  Receive Date: 20120809
  Receipt Date: 20120830
  Transmission Date: 20130627
  Serious: Yes (Hospitalization)
  Sender: FDA-Public Use
  Company Number: US-CELGENEUS-163-21880-12080178

PATIENT
  Age: 70 Year
  Sex: Female

DRUGS (16)
  1. REVLIMID [Suspect]
     Indication: CLL
     Dosage: 2.5 Milligram
     Route: 048
     Dates: start: 20120718, end: 20120725
  2. ASPIRIN [Concomitant]
     Indication: DRUG USE FOR UNKNOWN INDICATION
     Dosage: 81 Milligram
     Route: 048
     Dates: start: 201207
  3. ALLOPURINOL [Concomitant]
     Indication: DRUG USE FOR UNKNOWN INDICATION
     Dosage: 300 Milligram
     Route: 048
     Dates: start: 201207
  4. CALTRATE [Concomitant]
     Indication: DRUG USE FOR UNKNOWN INDICATION
     Dosage: 2 Tablet
     Route: 048
     Dates: start: 201207
  5. GLUCOSAMINE CHONDROITIN [Concomitant]
     Indication: DRUG USE FOR UNKNOWN INDICATION
     Dosage: 1 Tablet
     Route: 048
     Dates: start: 201207
  6. PRILOSEC [Concomitant]
     Indication: DYSPEPSIA
     Route: 065
     Dates: start: 20120726
  7. TYLENOL [Concomitant]
     Indication: DRUG USE FOR UNKNOWN INDICATION
     Dosage: 650 Milligram
     Route: 048
     Dates: start: 201207
  8. SODIUM CHLORIDE [Concomitant]
     Indication: DRUG USE FOR UNKNOWN INDICATION
     Dosage: .9 Percent
     Route: 041
     Dates: start: 201207
  9. HEPARIN [Concomitant]
     Indication: DRUG USE FOR UNKNOWN INDICATION
     Dosage: 5000 units
     Route: 041
     Dates: start: 201207
  10. MORPHINE [Concomitant]
     Indication: DRUG USE FOR UNKNOWN INDICATION
     Dosage: 2 Milligram
     Route: 065
     Dates: start: 201207
  11. VICODIN [Concomitant]
     Indication: DRUG USE FOR UNKNOWN INDICATION
     Dosage: 1 Tablet
     Route: 048
     Dates: start: 201207
  12. DULCOLAX [Concomitant]
     Indication: DRUG USE FOR UNKNOWN INDICATION
     Dosage: 10 Milligram
     Route: 048
     Dates: start: 201207
  13. MAG-AL-PLUS [Concomitant]
     Indication: DRUG USE FOR UNKNOWN INDICATION
     Dosage: 30 milliliter
     Route: 048
     Dates: start: 201207
  14. ZOFRAN [Concomitant]
     Indication: DRUG USE FOR UNKNOWN INDICATION
     Dosage: 4 Milligram
     Route: 048
     Dates: start: 201207
  15. MULTIVITAMINS [Concomitant]
     Indication: DRUG USE FOR UNKNOWN INDICATION
     Dosage: 1 Tablet
     Route: 048
     Dates: start: 201207
  16. RITUXIMAB [Concomitant]
     Indication: CLL
     Route: 041

REACTIONS (3)
  - Systemic inflammatory response syndrome [Not Recovered/Not Resolved]
  - Febrile neutropenia [Not Recovered/Not Resolved]
  - Pancytopenia [Not Recovered/Not Resolved]
